FAERS Safety Report 10066394 (Version 1)
Quarter: 2014Q2

REPORT INFORMATION
  Report Type: Spontaneous
  Country: TR (occurrence: TR)
  Receive Date: 20140408
  Receipt Date: 20140408
  Transmission Date: 20141212
  Serious: Yes (Death, Other)
  Sender: FDA-Public Use
  Company Number: TR-009507513-1404TUR004015

PATIENT
  Age: 67 Year
  Sex: Male

DRUGS (6)
  1. MIRTAZAPINE [Suspect]
     Indication: APATHY
     Dosage: 15 MG, HS
     Route: 048
  2. MIRTAZAPINE [Interacting]
     Indication: DISTURBANCE IN ATTENTION
  3. SERTRALINE HYDROCHLORIDE [Interacting]
     Dosage: 50 MG, QD
  4. SERTRALINE HYDROCHLORIDE [Interacting]
     Dosage: 100 MG, QD
  5. VENLAFAXINE HYDROCHLORIDE [Concomitant]
  6. ALPRAZOLAM [Concomitant]

REACTIONS (6)
  - Respiratory arrest [Fatal]
  - Ventricular tachycardia [Fatal]
  - Endotracheal intubation [Unknown]
  - Cardioversion [Unknown]
  - Drug interaction [Unknown]
  - Cardiac arrest [Fatal]
